FAERS Safety Report 18033371 (Version 2)
Quarter: 2020Q3

REPORT INFORMATION
  Report Type: Spontaneous
  Country: ES (occurrence: ES)
  Receive Date: 20200716
  Receipt Date: 20200819
  Transmission Date: 20201103
  Serious: Yes (Other)
  Sender: FDA-Public Use
  Company Number: ES-PFIZER INC-2020232332

PATIENT
  Age: 14 Year
  Sex: Female
  Weight: 46 kg

DRUGS (1)
  1. GENOTONORM KABIPEN [Suspect]
     Active Substance: SOMATROPIN
     Indication: GROWTH HORMONE DEFICIENCY
     Dosage: 1.65 MG, 1X/DAY
     Route: 058

REACTIONS (4)
  - Hypothyroidism [Unknown]
  - Diabetes insipidus [Unknown]
  - Hypopituitarism [Unknown]
  - Product dose omission issue [Unknown]

NARRATIVE: CASE EVENT DATE: 20200614
